FAERS Safety Report 13834603 (Version 1)
Quarter: 2017Q3

REPORT INFORMATION
  Report Type: Spontaneous
  Country: US (occurrence: US)
  Receive Date: 20170804
  Receipt Date: 20170804
  Transmission Date: 20171127
  Serious: Yes (Death)
  Sender: FDA-Public Use
  Company Number: US-ASTELLAS-2017US031033

PATIENT
  Age: 52 Year
  Sex: Female
  Weight: 48 kg

DRUGS (1)
  1. TARCEVA [Suspect]
     Active Substance: ERLOTINIB HYDROCHLORIDE
     Indication: HISTIOCYTOSIS
     Dosage: 240 MG, OTHER (TWICE IN 2 DAYS)
     Route: 048
     Dates: start: 20170607, end: 20170729

REACTIONS (1)
  - Death [Fatal]

NARRATIVE: CASE EVENT DATE: 20170729
